APPROVED DRUG PRODUCT: FORANE
Active Ingredient: ISOFLURANE
Strength: 99.9%
Dosage Form/Route: LIQUID;INHALATION
Application: N017624 | Product #001 | TE Code: AN
Applicant: BAXTER HEALTHCARE CORP
Approved: Approved Prior to Jan 1, 1982 | RLD: Yes | RS: Yes | Type: RX